FAERS Safety Report 9028241 (Version 1)
Quarter: 2012Q4

REPORT INFORMATION
  Report Type: Spontaneous
  Country: NL (occurrence: None)
  Receive Date: 20120831
  Receipt Date: 20120831
  Transmission Date: 20130627
  Serious: Yes (Death)
  Sender: FDA-Public Use
  Company Number: 2012-3787

PATIENT
  Age: 75 Year
  Sex: Male

DRUGS (3)
  1. SOMATULINE [Suspect]
     Indication: NEUROENDOCRINE TUMOUR
     Dosage: 60  mg  (60  mg,  1 in 14  D),  Subcutaneous
     Route: 058
     Dates: start: 20091020, end: 20120801
  2. SOMATULINE [Suspect]
     Indication: NEUROENDOCRINE TUMOUR
  3. SOMATULINE [Suspect]
     Indication: NEUROENDOCRINE TUMOUR

REACTIONS (2)
  - Disease progression [None]
  - Inappropriate schedule of drug administration [None]
